FAERS Safety Report 4519318-7 (Version None)
Quarter: 2004Q4

REPORT INFORMATION
  Report Type: 
  Country: None (occurrence: None)
  Receive Date: 20041206
  Receipt Date: 20041126
  Transmission Date: 20050328
  Serious: Yes (Other)
  Sender: FDA-Public Use
  Company Number: GB-GLAXOSMITHKLINE-B0358404A

PATIENT
  Age: 66 Year
  Sex: Male
  Weight: 75 kg

DRUGS (6)
  1. BECLOMETHASONE DIPROPIONATE [Suspect]
     Indication: ASTHMA
     Dosage: 100MCG UNKNOWN
     Dates: start: 20041005, end: 20041015
  2. LEVOTHYROXINE SODIUM [Concomitant]
     Indication: HYPOTHYROIDISM
     Dosage: 100MCG PER DAY
     Route: 048
     Dates: start: 20031125
  3. ATORVASTATIN [Concomitant]
     Dosage: 10MG PER DAY
     Route: 048
     Dates: start: 20021114
  4. ASPIRIN [Concomitant]
     Dosage: 75MG PER DAY
     Route: 048
     Dates: start: 19990902
  5. ISOSORBIDE MONONITRATE [Concomitant]
     Dosage: 50MG PER DAY
     Route: 048
     Dates: start: 20010220
  6. ALBUTEROL [Concomitant]
     Indication: ASTHMA
     Dosage: 100MCG PER DAY
     Dates: start: 20040823

REACTIONS (3)
  - ASTHMA [None]
  - DYSPNOEA [None]
  - NAUSEA [None]
